FAERS Safety Report 7511877-5 (Version None)
Quarter: 2011Q2

REPORT INFORMATION
  Report Type: 
  Country: None (occurrence: None)
  Receive Date: 20110531
  Receipt Date: 20110518
  Transmission Date: 20111010
  Serious: Yes (Hospitalization)
  Sender: FDA-Public Use
  Company Number: GB-NAPPMUNDI-DEU-2011-0007294

PATIENT
  Sex: Female

DRUGS (8)
  1. HYDROMORPHONE HCL [Suspect]
     Indication: BACK PAIN
     Dosage: 24 MG, DAILY
     Dates: start: 20110427
  2. HYDROMORPHONE HCL [Suspect]
     Dosage: 16 MG, DAILY
     Dates: start: 20110425, end: 20110426
  3. AMLODIPINE [Concomitant]
     Indication: HYPERTENSION
     Dosage: 5 MG, UNK
     Route: 048
     Dates: start: 20071213
  4. FYBOGEL [Concomitant]
     Indication: DIVERTICULUM
     Dosage: 2 OTHER, UNK
     Route: 048
     Dates: start: 20050512
  5. GABAPENTIN [Concomitant]
     Indication: BACK PAIN
     Dosage: 600 MG, UNK
     Route: 048
     Dates: start: 20110211
  6. BENDROFLUAZIDE [Concomitant]
     Indication: HYPERTENSION
     Dosage: 2.5 MG, UNK
     Route: 048
     Dates: start: 20020305
  7. HYDROMORPHONE HCL [Suspect]
     Dosage: 8 MG, DAILY
     Dates: start: 20110420, end: 20110424
  8. FYBOGEL [Concomitant]
     Indication: CONSTIPATION

REACTIONS (1)
  - VIRAL INFECTION [None]
